FAERS Safety Report 4541023-1 (Version None)
Quarter: 2004Q4

REPORT INFORMATION
  Report Type: 
  Country: None (occurrence: None)
  Receive Date: 20041228
  Receipt Date: 20041214
  Transmission Date: 20050328
  Serious: Yes (Other)
  Sender: FDA-Public Use
  Company Number: SGB1-2004-00457

PATIENT
  Sex: Female

DRUGS (1)
  1. AGRYLIN [Suspect]
     Indication: ESSENTIAL THROMBOCYTHAEMIA

REACTIONS (3)
  - HYPOTENSION [None]
  - PALPITATIONS [None]
  - TACHYCARDIA [None]
